FAERS Safety Report 9156686 (Version 1)
Quarter: 2013Q1

REPORT INFORMATION
  Report Type: Spontaneous
  Country: US (occurrence: None)
  Receive Date: 20130307
  Receipt Date: 20130307
  Transmission Date: 20140127
  Serious: Yes (Life-Threatening)
  Sender: FDA-Public Use
  Company Number: None

PATIENT
  Age: 50 Year
  Sex: Male
  Weight: 101.2 kg

DRUGS (1)
  1. ALTEPLASE [Suspect]
     Indication: DIALYSIS

REACTIONS (9)
  - Rash [None]
  - Dyspnoea [None]
  - Pruritus [None]
  - Urticaria [None]
  - Swollen tongue [None]
  - Respiratory distress [None]
  - Anaphylactic reaction [None]
  - Angioedema [None]
  - Lip swelling [None]
